FAERS Safety Report 9819574 (Version 2)
Quarter: 2014Q1

REPORT INFORMATION
  Report Type: Spontaneous
  Country: US (occurrence: None)
  Receive Date: 20140113
  Receipt Date: 20140318
  Transmission Date: 20141002
  Serious: Yes (Other)
  Sender: FDA-Public Use
  Company Number: 2014-00001

PATIENT
  Age: 40 Year
  Sex: Female

DRUGS (1)
  1. ZICAM EXTREME CONGESTION RELIEF [Suspect]
     Indication: NASAL CONGESTION
     Dosage: 1 SPRAY EA NOSTRIL 2X DA
     Dates: start: 20131225, end: 20131228

REACTIONS (3)
  - Ageusia [None]
  - Anosmia [None]
  - Influenza [None]
